FAERS Safety Report 5405975-X (Version None)
Quarter: 2007Q3

REPORT INFORMATION
  Report Type: 
  Country: None (occurrence: None)
  Receive Date: 20070806
  Receipt Date: 20070726
  Transmission Date: 20080115
  Serious: Yes (Hospitalization)
  Sender: FDA-Public Use
  Company Number: US-AMGEN-STX234814

PATIENT
  Sex: Male

DRUGS (13)
  1. ENBREL [Suspect]
     Indication: RHEUMATOID ARTHRITIS
     Route: 058
     Dates: start: 20060414
  2. METHOTREXATE [Concomitant]
     Route: 048
     Dates: start: 19870101
  3. COUMADIN [Concomitant]
  4. SIMVASTATIN [Concomitant]
     Route: 048
  5. TERAZOSIN HCL [Concomitant]
     Route: 048
  6. CAPTOPRIL [Concomitant]
     Route: 048
  7. LEVOTHYROXINE SODIUM [Concomitant]
     Route: 048
  8. RANITIDINE [Concomitant]
     Route: 048
  9. METOPROLOL SUCCINATE [Concomitant]
     Route: 048
  10. CENTRUM SILVER [Concomitant]
     Route: 048
  11. FOLIC ACID [Concomitant]
     Route: 048
  12. GLIPIZIDE [Concomitant]
     Route: 048
  13. NORCO [Concomitant]

REACTIONS (1)
  - RHEUMATOID ARTHRITIS [None]
